FAERS Safety Report 7633005-8 (Version None)
Quarter: 2011Q3

REPORT INFORMATION
  Report Type: 
  Country: None (occurrence: None)
  Receive Date: 20110725
  Receipt Date: 20110719
  Transmission Date: 20111222
  Serious: Yes (Death, Other)
  Sender: FDA-Public Use
  Company Number: PHHY2011JP65807

PATIENT
  Age: 68 Year
  Sex: Male

DRUGS (2)
  1. GLEEVEC [Suspect]
     Dosage: 200 MG, DAILY
     Route: 048
     Dates: start: 20060922, end: 20110310
  2. GLEEVEC [Suspect]
     Indication: GASTROINTESTINAL STROMAL TUMOUR
     Dosage: 400 MG, DAILY
     Route: 048
     Dates: start: 20050607, end: 20060729

REACTIONS (4)
  - GASTROINTESTINAL HAEMORRHAGE [None]
  - MELAENA [None]
  - DEATH [None]
  - ANAEMIA [None]
